FAERS Safety Report 5089001-0 (Version None)
Quarter: 2006Q3

REPORT INFORMATION
  Report Type: 
  Country: None (occurrence: None)
  Receive Date: 20060825
  Receipt Date: 20060126
  Transmission Date: 20061208
  Serious: Yes (Hospitalization)
  Sender: FDA-Public Use
  Company Number: PHEH2006US01415

PATIENT
  Age: 71 Year
  Sex: Female

DRUGS (5)
  1. FEMARA [Concomitant]
     Indication: BREAST CANCER
     Dosage: 2.5 MG, QD
     Dates: start: 20050915
  2. NEURONTIN [Concomitant]
     Dosage: 600 MG, UNK
  3. SKELAXIN [Concomitant]
     Dosage: 2400 MG, UNK
  4. ELAVIL [Concomitant]
     Dosage: 10 MG, UNK
  5. ZOLEDRONATE [Suspect]
     Indication: METASTASES TO BONE
     Dosage: 4 MG
     Dates: start: 20060105, end: 20060105

REACTIONS (16)
  - ABDOMINAL PAIN UPPER [None]
  - BETA HAEMOLYTIC STREPTOCOCCAL INFECTION [None]
  - BLOOD CULTURE POSITIVE [None]
  - BODY TEMPERATURE DECREASED [None]
  - BONE PAIN [None]
  - CELLULITIS [None]
  - DECREASED APPETITE [None]
  - DISORIENTATION [None]
  - FATIGUE [None]
  - HEADACHE [None]
  - MIGRAINE [None]
  - MUSCLE SPASMS [None]
  - MYALGIA [None]
  - NAUSEA [None]
  - SEPSIS [None]
  - VOMITING [None]
